FAERS Safety Report 25791094 (Version 2)
Quarter: 2025Q3

REPORT INFORMATION
  Report Type: Other
  Country: EU (occurrence: EU)
  Receive Date: 20250911
  Receipt Date: 20250917
  Transmission Date: 20251020
  Serious: Yes (Hospitalization, Other)
  Sender: GLENMARK
  Company Number: None

PATIENT
  Age: 54 Year
  Sex: Male
  Weight: 92 kg

DRUGS (8)
  1. ATOVAQUONE [Suspect]
     Active Substance: ATOVAQUONE
     Indication: Antifungal prophylaxis
     Dosage: 1500 MILLIGRAM, QD 5/750 MILLIGRAM PER MILLILITRE
     Route: 048
     Dates: start: 20250603, end: 20250613
  2. ATOVAQUONE [Suspect]
     Active Substance: ATOVAQUONE
     Dosage: 1500 MILLIGRAM, QD
     Route: 048
     Dates: start: 20250615, end: 20250617
  3. ATOVAQUONE [Suspect]
     Active Substance: ATOVAQUONE
     Dosage: 1500 MILLIGRAM, QD
     Route: 048
     Dates: start: 20250701, end: 20250703
  4. ATOVAQUONE [Suspect]
     Active Substance: ATOVAQUONE
     Route: 065
  5. ADCETRIS [Suspect]
     Active Substance: BRENTUXIMAB VEDOTIN
     Indication: Cutaneous T-cell lymphoma
     Route: 042
     Dates: start: 20250603, end: 20250603
  6. ADCETRIS [Suspect]
     Active Substance: BRENTUXIMAB VEDOTIN
     Route: 065
  7. BENDAMUSTINE [Suspect]
     Active Substance: BENDAMUSTINE
     Indication: Cutaneous T-cell lymphoma
     Dosage: 180 MILLIGRAM, QD
     Route: 042
     Dates: start: 20250603, end: 20250604
  8. BENDAMUSTINE [Suspect]
     Active Substance: BENDAMUSTINE
     Route: 065

REACTIONS (5)
  - Hepatic cytolysis [Recovering/Resolving]
  - Neuropathy peripheral [Recovering/Resolving]
  - Arthralgia [Recovered/Resolved]
  - Rash [Recovered/Resolved]
  - Pyrexia [Recovered/Resolved]

NARRATIVE: CASE EVENT DATE: 20250606
